FAERS Safety Report 6208211-X (Version None)
Quarter: 2009Q2

REPORT INFORMATION
  Report Type: 
  Country: None (occurrence: None)
  Receive Date: 20090522
  Receipt Date: 20090507
  Transmission Date: 20091009
  Serious: Yes (Other)
  Sender: FDA-Public Use
  Company Number: 2009S1008087

PATIENT
  Age: 7 Year
  Sex: Male

DRUGS (1)
  1. ONDANSETRON HCL [Suspect]
     Indication: PROPHYLAXIS OF NAUSEA AND VOMITING
     Dosage: 2 MG; INTRAVENOUS
     Route: 042

REACTIONS (1)
  - ARRHYTHMIA [None]
